FAERS Safety Report 24336142 (Version 1)
Quarter: 2024Q3

REPORT INFORMATION
  Report Type: Spontaneous
  Country: RU (occurrence: RU)
  Receive Date: 20240919
  Receipt Date: 20240919
  Transmission Date: 20241017
  Serious: Yes (Hospitalization)
  Sender: JOHNSON AND JOHNSON
  Company Number: RU-BAYER-2024A130669

PATIENT
  Age: 15 Year
  Sex: Male

DRUGS (6)
  1. XARELTO [Suspect]
     Active Substance: RIVAROXABAN
     Indication: Venous thrombosis
     Dosage: 15 MG
     Route: 048
     Dates: start: 20240815, end: 20240827
  2. PAZOPANIB [Concomitant]
     Active Substance: PAZOPANIB
  3. FLUCONAZOLE [Concomitant]
     Active Substance: FLUCONAZOLE
  4. SPIRONOLACTONE [Concomitant]
     Active Substance: SPIRONOLACTONE
  5. AMIKACIN [Concomitant]
     Active Substance: AMIKACIN
  6. CARVEDILOL [Concomitant]
     Active Substance: CARVEDILOL

REACTIONS (2)
  - Epistaxis [Recovered/Resolved]
  - Hypocoagulable state [Recovered/Resolved]

NARRATIVE: CASE EVENT DATE: 20240826
